FAERS Safety Report 23227190 (Version 1)
Quarter: 2023Q4

REPORT INFORMATION
  Report Type: Spontaneous
  Country: AU (occurrence: None)
  Receive Date: 20231124
  Receipt Date: 20231124
  Transmission Date: 20240110
  Serious: Yes (Other)
  Sender: FDA-Public Use
  Company Number: AU-ROCHE-3462712

PATIENT
  Sex: Female

DRUGS (1)
  1. ACTEMRA [Suspect]
     Active Substance: TOCILIZUMAB
     Indication: Product used for unknown indication
     Dosage: (STRENGTH: 162 MG/0.9 ML)
     Route: 058

REACTIONS (2)
  - Condition aggravated [Unknown]
  - Drug ineffective [Unknown]
